FAERS Safety Report 21408363 (Version 1)
Quarter: 2022Q4

REPORT INFORMATION
  Report Type: Spontaneous
  Country: CA (occurrence: CA)
  Receive Date: 20221004
  Receipt Date: 20221004
  Transmission Date: 20230112
  Serious: Yes (Other)
  Sender: FDA-Public Use
  Company Number: CA-TAKEDA-2022TUS069848

PATIENT
  Age: 67 Year
  Sex: Male

DRUGS (1)
  1. HUMAN IMMUNOGLOBULIN G [Suspect]
     Active Substance: HUMAN IMMUNOGLOBULIN G
     Indication: Product used for unknown indication
     Dosage: 30 GRAM
     Route: 042
     Dates: start: 20220916, end: 20220916

REACTIONS (1)
  - Acute haemolytic transfusion reaction [Recovered/Resolved]

NARRATIVE: CASE EVENT DATE: 20220916
